FAERS Safety Report 9132868 (Version 1)
Quarter: 2013Q1

REPORT INFORMATION
  Report Type: Spontaneous
  Country: US (occurrence: US)
  Receive Date: 20130120
  Receipt Date: 20130120
  Transmission Date: 20140127
  Serious: No
  Sender: FDA-Public Use
  Company Number: US-ALLERGAN-1212755US

PATIENT
  Age: 32 Year
  Sex: Female
  Weight: 57.14 kg

DRUGS (7)
  1. BOTOX? [Suspect]
     Indication: SKIN WRINKLING
     Dosage: UNK, SINGLE
     Route: 030
     Dates: start: 20120905, end: 20120905
  2. BOTOX? [Suspect]
     Indication: SKIN WRINKLING
     Dosage: 10 UNITS, SINGLE
     Route: 030
     Dates: start: 20120905, end: 20120905
  3. BOTOX? [Suspect]
     Indication: SKIN WRINKLING
     Dosage: 5 UNITS, SINGLE
     Route: 030
     Dates: start: 20120905, end: 20120905
  4. REFRESH CLASSIC [Suspect]
     Indication: DRY EYE
     Route: 047
  5. BLINK EYEDROPS [Concomitant]
     Indication: DRY EYE
  6. TYLENOL /00020001/ [Concomitant]
     Indication: HEADACHE
  7. IBROFEN [Concomitant]
     Indication: HEADACHE

REACTIONS (4)
  - Incorrect dose administered [Unknown]
  - Dry eye [Recovered/Resolved]
  - Headache [Recovered/Resolved]
  - Drug ineffective [Unknown]
